FAERS Safety Report 5643241-8 (Version None)
Quarter: 2008Q1

REPORT INFORMATION
  Report Type: 
  Country: None (occurrence: None)
  Receive Date: 20080226
  Receipt Date: 20080219
  Transmission Date: 20080703
  Serious: Yes (Death)
  Sender: FDA-Public Use
  Company Number: GXKR2008DE01834

PATIENT
  Age: 85 Year
  Sex: Female

DRUGS (14)
  1. OXAZEPAM (NGX)(OXAZEPAM) TABLET [Suspect]
     Indication: SLEEP DISORDER
     Dosage: QD, ORAL; QD, ORAL; QD, ORAL
     Route: 048
     Dates: start: 20030414, end: 20030415
  2. OXAZEPAM (NGX)(OXAZEPAM) TABLET [Suspect]
     Indication: SLEEP DISORDER
     Dosage: QD, ORAL; QD, ORAL; QD, ORAL
     Route: 048
     Dates: start: 20030419, end: 20030422
  3. OXAZEPAM (NGX)(OXAZEPAM) TABLET [Suspect]
     Indication: SLEEP DISORDER
     Dosage: QD, ORAL; QD, ORAL; QD, ORAL
     Route: 048
     Dates: start: 20030406
  4. TRAMADOL HYDROHLORIDE [Suspect]
     Indication: PAIN
     Dosage: 2X1 TABLETS, ORAL; ORAL
     Route: 048
     Dates: start: 20030411, end: 20030411
  5. TRAMADOL HYDROHLORIDE [Suspect]
     Indication: PAIN
     Dosage: 2X1 TABLETS, ORAL; ORAL
     Route: 048
     Dates: end: 20070402
  6. NEOTRI(TRIAMTERENE, XIPAMIDE) [Suspect]
     Indication: HYPERTENSION
     Dosage: QD, ORAL
     Route: 048
     Dates: start: 20021001, end: 20030415
  7. PANTOZOL(PANTOPRAZOLE SODIUM) 40MG [Suspect]
     Dosage: QD, ORAL
     Route: 048
     Dates: start: 20030314, end: 20030422
  8. AZOPT [Suspect]
     Indication: GLAUCOMA
     Dosage: INTRAOCULAR
     Route: 031
     Dates: start: 20030314
  9. LACTULOSE [Suspect]
     Indication: CONSTIPATION
     Dosage: ORAL
     Route: 048
     Dates: start: 20030331
  10. FRAXIPARIN(HEPARIN-FRACTION, CALCIUM SALT) [Suspect]
     Indication: THROMBOSIS PROPHYLAXIS
     Dosage: SUBCUTANEOUS
     Route: 058
     Dates: start: 20030402, end: 20030422
  11. IRENAT(SODIUM PERCHLORATE) [Suspect]
     Indication: HYPERTHYROIDISM
     Dosage: ORAL
     Route: 048
     Dates: start: 20030303, end: 20030417
  12. LOESCALCON(CALCIUM CARBONATE) [Suspect]
     Indication: OSTEOPOROSIS
     Dosage: QD, ORAL
     Route: 048
     Dates: start: 20030408, end: 20030419
  13. FAVISTAN(THIAMAZOLE) [Suspect]
     Indication: HYPERTHYROIDISM
     Dosage: ORAL
     Route: 048
     Dates: start: 20030409
  14. VIOXX [Suspect]
     Indication: BACK PAIN
     Dosage: 12.5 MG, QD, ORAL
     Route: 048
     Dates: start: 20030414

REACTIONS (1)
  - TOXIC EPIDERMAL NECROLYSIS [None]
